FAERS Safety Report 6344313-5 (Version None)
Quarter: 2009Q3

REPORT INFORMATION
  Report Type: 
  Country: None (occurrence: None)
  Receive Date: 20090821
  Receipt Date: 20090422
  Transmission Date: 20100115
  Serious: No
  Sender: FDA-Public Use
  Company Number: 8045242

PATIENT
  Age: 64 Year
  Sex: Female
  Weight: 78.6 kg

DRUGS (8)
  1. CIMZIA [Suspect]
     Indication: CROHN'S DISEASE
     Dosage: 400 MG SC
     Route: 058
     Dates: start: 20090227
  2. SYNTHROID [Concomitant]
  3. FOLIC ACID [Concomitant]
  4. ASACOL [Concomitant]
  5. POTASSIUM CHLORIDE [Concomitant]
  6. LISINOPRIL [Concomitant]
  7. HYDROCHLOROTHIAZIDE [Concomitant]
  8. MUSCLE RELAXER [Concomitant]

REACTIONS (3)
  - MUSCLE SPASMS [None]
  - SINUSITIS [None]
  - VERTIGO [None]
